FAERS Safety Report 14029032 (Version 1)
Quarter: 2017Q4

REPORT INFORMATION
  Report Type: Spontaneous
  Country: US (occurrence: None)
  Receive Date: 20171002
  Receipt Date: 20171002
  Transmission Date: 20180321
  Serious: Yes (Other)
  Sender: FDA-Public Use
  Company Number: None

PATIENT
  Age: 61 Year
  Sex: Male

DRUGS (1)
  1. INLYTA [Suspect]
     Active Substance: AXITINIB
     Indication: RENAL CANCER
     Route: 048
     Dates: start: 20170324

REACTIONS (5)
  - Drug dose omission [None]
  - Depression [None]
  - Suicidal ideation [None]
  - Stomatitis [None]
  - Inflammation [None]

NARRATIVE: CASE EVENT DATE: 20170901
